FAERS Safety Report 13337200 (Version 1)
Quarter: 2017Q1

REPORT INFORMATION
  Report Type: Spontaneous
  Country: US (occurrence: US)
  Receive Date: 20170314
  Receipt Date: 20170314
  Transmission Date: 20170428
  Serious: Yes (Other)
  Sender: FDA-Public Use
  Company Number: None

PATIENT
  Age: 36 Year
  Sex: Female
  Weight: 119.2 kg

DRUGS (1)
  1. AUGMENTIN [Suspect]
     Active Substance: AMOXICILLIN\CLAVULANATE POTASSIUM
     Indication: BURNS SECOND DEGREE
     Dosage: ?          QUANTITY:20 TABLET(S);?
     Route: 048
     Dates: start: 20170314, end: 20170314

REACTIONS (8)
  - Chest pain [None]
  - Dyspnoea [None]
  - Erythema [None]
  - Lip swelling [None]
  - Dysphonia [None]
  - Flushing [None]
  - Abdominal pain upper [None]
  - Speech disorder [None]

NARRATIVE: CASE EVENT DATE: 20170314
